FAERS Safety Report 8807622 (Version 1)
Quarter: 2012Q4

REPORT INFORMATION
  Report Type: 
  Country: FR (occurrence: FR)
  Receive Date: 20120925
  Receipt Date: 20120925
  Transmission Date: 20130627
  Serious: Yes (Other)
  Sender: FDA-Public Use
  Company Number: FR-GENZYME-CLOF-1002302

PATIENT
  Age: 54 Year
  Sex: Female
  Weight: 84 kg

DRUGS (11)
  1. EVOLTRA [Suspect]
     Indication: ACUTE MYELOID LEUKAEMIA
     Dosage: 57 mg/day,
     Route: 042
     Dates: start: 20110617
  2. EVOLTRA [Suspect]
     Dosage: 38 mg, UNK
     Route: 042
     Dates: start: 20110824, end: 20110828
  3. CYTARABINE [Suspect]
     Indication: ACUTE MYELOID LEUKAEMIA
     Dosage: 1910 mg/day, UNK
     Route: 042
     Dates: start: 20110617
  4. CYTARABINE [Suspect]
     Dosage: 100 mg, UNK
     Route: 042
     Dates: start: 20110823, end: 20110827
  5. DAUNORUBICINE [Suspect]
     Indication: PRODUCT USED FOR UNKNOWN INDICATION
     Dosage: 55 mg/day,
     Route: 042
     Dates: start: 20110425
  6. FILGRASTIM [Suspect]
     Indication: PRODUCT USED FOR UNKNOWN INDICATION
     Dosage: 430 mg/day, UNK
     Route: 042
     Dates: start: 20110430
  7. NOXAFIL [Suspect]
     Indication: PRODUCT USED FOR UNKNOWN INDICATION
     Dosage: 200 mg, UNK
     Route: 048
     Dates: start: 20110430
  8. NOXAFIL [Suspect]
     Dosage: 200 mg, UNK
     Route: 065
     Dates: start: 20120420
  9. VANCOMYCIN [Concomitant]
     Indication: PRODUCT USED FOR UNKNOWN INDICATION
     Dosage: UNK
     Route: 065
  10. TAZOCILLINE [Concomitant]
     Indication: PRODUCT USED FOR UNKNOWN INDICATION
     Dosage: UNK
     Route: 065
  11. ANTI EMETICS [Concomitant]
     Indication: PRODUCT USED FOR UNKNOWN INDICATION
     Dosage: UNK
     Route: 065

REACTIONS (4)
  - Hepatitis [Recovered/Resolved]
  - Haemorrhage [Unknown]
  - Bone marrow failure [Recovered/Resolved]
  - Staphylococcal sepsis [Unknown]
